FAERS Safety Report 15518009 (Version 14)
Quarter: 2020Q1

REPORT INFORMATION
  Report Type: Report from Study
  Country: AT (occurrence: AT)
  Receive Date: 20181017
  Receipt Date: 20200318
  Transmission Date: 20200409
  Serious: Yes (Hospitalization)
  Sender: FDA-Public Use
  Company Number: AT-PFIZER INC-2018417419

PATIENT
  Age: 61 Year
  Sex: Female
  Weight: 55 kg

DRUGS (34)
  1. ZOFRAN [Concomitant]
     Active Substance: ONDANSETRON HYDROCHLORIDE
     Dosage: UNK
     Dates: start: 20190919
  2. AZITHROMYCIN ANHYDROUS. [Concomitant]
     Active Substance: AZITHROMYCIN ANHYDROUS
     Indication: PYREXIA
     Dosage: UNK
     Dates: start: 20190910, end: 20190912
  3. KYTRIL [Concomitant]
     Active Substance: GRANISETRON HYDROCHLORIDE
     Dosage: UNK
     Route: 065
     Dates: start: 20190829
  4. MAGNESIUM SUCCINATE [Concomitant]
     Dosage: UNK
     Dates: start: 20190819
  5. ULSAL [Concomitant]
     Active Substance: RANITIDINE HYDROCHLORIDE
     Dosage: UNK
     Route: 065
     Dates: start: 20180809, end: 20190704
  6. VITAMINS WITH MINERALS [Concomitant]
     Active Substance: MINERALS\VITAMINS
     Dosage: UNK
     Dates: start: 20181205
  7. NAVELBINE [Suspect]
     Active Substance: VINORELBINE TARTRATE
     Indication: HER-2 POSITIVE BREAST CANCER
     Dosage: 50 MG, UNK (MOST RECENT DOSE PRIOR TO THE EVENT: 30NOV2018, 13/JUN/2019)
     Route: 048
     Dates: start: 20180719
  8. DUROTIV [Concomitant]
     Active Substance: ESOMEPRAZOLE
     Indication: NAUSEA
     Dosage: UNK
     Route: 065
     Dates: start: 20180819, end: 20190615
  9. HALDOL [Concomitant]
     Active Substance: HALOPERIDOL
     Indication: DYSPEPSIA
     Dosage: UNK
     Dates: start: 20180731, end: 20180815
  10. FENISTIL [Concomitant]
     Active Substance: DIMETHINDENE
     Dosage: UNK
     Route: 065
     Dates: start: 20180809, end: 20190704
  11. MACROGOL [Concomitant]
     Active Substance: POLYETHYLENE GLYCOLS
     Dosage: UNK
     Route: 065
     Dates: start: 20180719
  12. MACROGOL [Concomitant]
     Active Substance: POLYETHYLENE GLYCOLS
     Dosage: UNK
     Route: 065
     Dates: start: 20190615
  13. DEXAMETHASONE. [Concomitant]
     Active Substance: DEXAMETHASONE
     Dosage: UNK
     Route: 065
     Dates: start: 20190829
  14. BEPANTHEN EYE [Concomitant]
     Indication: CONJUNCTIVITIS
     Dosage: UNK
     Route: 065
     Dates: start: 20190221
  15. PERTUZUMAB. [Suspect]
     Active Substance: PERTUZUMAB
     Indication: HER-2 POSITIVE BREAST CANCER
     Dosage: 840 MG, EVERY 3 WEEKS, MOST RECENT DOSE PRIOR TO THE EVENT 19JUL2019-09AUG2018
     Route: 042
     Dates: start: 20180719
  16. TRASTUZUMAB EMTANSINE [Suspect]
     Active Substance: ADO-TRASTUZUMAB EMTANSINE
     Indication: HER-2 POSITIVE BREAST CANCER
     Dosage: 201.6 MG, EVERY 3 WEEKS (MOST RECENT DOSE PRIOR TO THE EVENT: 29AUG2019, 03/OCT/2019)
     Route: 042
     Dates: start: 20190829, end: 20190829
  17. FEMARA [Suspect]
     Active Substance: LETROZOLE
     Indication: HER-2 POSITIVE BREAST CANCER
     Dosage: 2.5 MG, 1X/DAY (MOST RECENT DOSE ON 19AUG2019)
     Route: 048
     Dates: start: 20190508
  18. HYDAL [Concomitant]
     Active Substance: HYDROMORPHONE HYDROCHLORIDE
     Indication: DYSPEPSIA
  19. ONTRUZANT [Suspect]
     Active Substance: TRASTUZUMAB-DTTB
     Indication: HER-2 POSITIVE BREAST CANCER
     Dosage: 336 MG, EVERY 3 WEEKS
     Route: 042
     Dates: start: 20181129, end: 20190516
  20. ONTRUZANT [Suspect]
     Active Substance: TRASTUZUMAB-DTTB
     Dosage: 336 MG, EVERY 3 WEEKS; MOST RECENT DOSE ON 04/JUL/2019
     Route: 042
     Dates: start: 20190613
  21. HALDOL [Concomitant]
     Active Substance: HALOPERIDOL
     Indication: NAUSEA
     Dosage: UNK
     Dates: start: 20180727, end: 20180815
  22. ZOFRAN [Concomitant]
     Active Substance: ONDANSETRON HYDROCHLORIDE
     Indication: NAUSEA
     Dosage: UNK
     Route: 065
     Dates: start: 20180920
  23. NOVALGIN (METAMIZOLE SODIUM) [Concomitant]
     Active Substance: METAMIZOLE SODIUM
     Dosage: UNK
     Route: 065
     Dates: start: 20180727
  24. APREDNISLON [Concomitant]
     Active Substance: PREDNISOLONE
     Dosage: UNK
     Route: 065
     Dates: start: 20190912, end: 20191114
  25. TRASTUZUMAB. [Suspect]
     Active Substance: TRASTUZUMAB
     Indication: HER-2 POSITIVE BREAST CANCER
     Dosage: 440 MG, EVERY 3 WEEKS (MOST RECENT DOSE PRIOR TO THE EVENT: 19JUL2018, 30/AUG/2018)
     Route: 042
     Dates: start: 20180719, end: 20180719
  26. AROMASIN [Suspect]
     Active Substance: EXEMESTANE
     Indication: HER-2 POSITIVE BREAST CANCER
     Dosage: 25 MG, 1X/DAY (MOST RECENT DOSE: 07MAY2019)
     Route: 048
     Dates: start: 20180719
  27. EUTHYROX [Concomitant]
     Active Substance: LEVOTHYROXINE SODIUM
     Dosage: UNK
     Route: 065
  28. XGEVA [Concomitant]
     Active Substance: DENOSUMAB
     Dosage: UNK
     Route: 065
     Dates: start: 20181215
  29. DUROTIV [Concomitant]
     Active Substance: ESOMEPRAZOLE
     Indication: DYSPEPSIA
     Dosage: UNK
     Route: 065
     Dates: start: 20180727, end: 20190615
  30. DUROTIV [Concomitant]
     Active Substance: ESOMEPRAZOLE
     Dosage: UNK
     Dates: start: 20190919
  31. HYDAL [Concomitant]
     Active Substance: HYDROMORPHONE HYDROCHLORIDE
     Indication: NAUSEA
     Dosage: UNK
     Route: 065
     Dates: start: 20180727
  32. ONDANSAN [Concomitant]
     Dosage: UNK
     Route: 065
     Dates: start: 20180709, end: 20190206
  33. DEXABENE [Concomitant]
     Dosage: UNK
     Route: 065
     Dates: start: 20180809, end: 20190704
  34. FORTECORTIN [DEXAMETHASONE] [Concomitant]
     Active Substance: DEXAMETHASONE
     Dosage: UNK
     Dates: start: 20190819, end: 20190912

REACTIONS (12)
  - Infusion related reaction [Recovered/Resolved]
  - Vertigo [Not Recovered/Not Resolved]
  - Dry skin [Recovered/Resolved]
  - Pyrexia [Recovered/Resolved]
  - Vertigo [Recovered/Resolved]
  - Diarrhoea [Recovered/Resolved]
  - Nausea [Recovered/Resolved]
  - Dyspepsia [Recovered/Resolved]
  - Pain [Recovering/Resolving]
  - Mucosal dryness [Recovered/Resolved]
  - Nausea [Recovered/Resolved]
  - Dysphagia [Recovering/Resolving]

NARRATIVE: CASE EVENT DATE: 20180727
